FAERS Safety Report 16192414 (Version 1)
Quarter: 2019Q2

REPORT INFORMATION
  Report Type: Spontaneous
  Country: US (occurrence: US)
  Receive Date: 20190412
  Receipt Date: 20190412
  Transmission Date: 20190711
  Serious: No
  Sender: FDA-Public Use
  Company Number: US-SA-2019SA099049

PATIENT

DRUGS (1)
  1. XYZAL [Suspect]
     Active Substance: LEVOCETIRIZINE DIHYDROCHLORIDE
     Dosage: UNK

REACTIONS (6)
  - Lacrimation increased [Unknown]
  - Photophobia [Unknown]
  - Eye pruritus [Unknown]
  - Rhinorrhoea [Unknown]
  - Drug ineffective [Unknown]
  - Sneezing [Unknown]
